FAERS Safety Report 4336734-7 (Version None)
Quarter: 2004Q2

REPORT INFORMATION
  Report Type: 
  Country: None (occurrence: None)
  Receive Date: 20040408
  Receipt Date: 20040324
  Transmission Date: 20050107
  Serious: Yes (Hospitalization, Disabling)
  Sender: FDA-Public Use
  Company Number: 2003036888

PATIENT
  Age: 66 Year
  Sex: Female

DRUGS (20)
  1. LIPITOR [Suspect]
     Indication: BLOOD CHOLESTEROL INCREASED
     Dosage: 40 MG
     Dates: end: 20001001
  2. ROFECOXIB [Suspect]
     Indication: ILL-DEFINED DISORDER
  3. PREDNISONE [Suspect]
     Indication: ILL-DEFINED DISORDER
  4. POTASSIUM (POTASSIUM) [Concomitant]
  5. AMLODIPINE BESYLATE [Concomitant]
  6. DYAZIDE [Concomitant]
  7. NARINE REPETABS (PSEUDOEPHEDRINE SULFATE, LORATADINE) [Concomitant]
  8. ESOMEPRAZOLE (ESOMEPRAZOLE) [Concomitant]
  9. LEVOTHYROXINE SODIUM [Concomitant]
  10. CENTRUM SILVER (ASCORBIC ACID, CALCIUM, MINERAL NOS, RETINOL, TOCOPHER [Concomitant]
  11. ACETYLSALICYLIC ACID SRT [Concomitant]
  12. CALCIUM CITRATE (CALCIUM CITRATE) [Concomitant]
  13. CHONDROITIN/GLUCOSAMINE (CHONDROITIN, GLUCOSAMINE) [Concomitant]
  14. VITAMIN B (VITAMIN B) [Concomitant]
  15. ASCORBIC ACID [Concomitant]
  16. TOCOPHEROL CONCENTRATE CAP [Concomitant]
  17. METHYLCELLULOSE (METHYLCELLULOSE) [Concomitant]
  18. PIROXICAM [Concomitant]
  19. HYDROXYZINE HCL [Concomitant]
  20. FERROUS SULFATE TAB [Concomitant]

REACTIONS (29)
  - ARTHRALGIA [None]
  - ASEPTIC NECROSIS BONE [None]
  - BACTERIA URINE [None]
  - BLOOD CHLORIDE DECREASED [None]
  - BLOOD POTASSIUM DECREASED [None]
  - BLOOD SODIUM DECREASED [None]
  - BUNDLE BRANCH BLOCK RIGHT [None]
  - CONSTIPATION [None]
  - DILATATION ATRIAL [None]
  - ELECTROCARDIOGRAM P WAVE ABNORMAL [None]
  - GAIT DISTURBANCE [None]
  - HAEMATOCRIT DECREASED [None]
  - HAEMOGLOBIN DECREASED [None]
  - HYPOTHYROIDISM [None]
  - MEAN CELL VOLUME INCREASED [None]
  - MUSCLE ATROPHY [None]
  - MUSCULAR WEAKNESS [None]
  - MYOPATHY [None]
  - NAUSEA [None]
  - OSTEOARTHRITIS [None]
  - PAIN [None]
  - POLYMYOSITIS [None]
  - RED BLOOD CELL COUNT DECREASED [None]
  - RED BLOOD CELLS URINE POSITIVE [None]
  - SCOLIOSIS [None]
  - SYNOVITIS [None]
  - URINARY TRACT INFECTION [None]
  - URINE KETONE BODY PRESENT [None]
  - VENTRICULAR EXTRASYSTOLES [None]
